FAERS Safety Report 5361741-5 (Version None)
Quarter: 2007Q2

REPORT INFORMATION
  Report Type: 
  Country: None (occurrence: None)
  Receive Date: 20070619
  Receipt Date: 20070614
  Transmission Date: 20071010
  Serious: Yes (Other)
  Sender: FDA-Public Use
  Company Number: GBWYE365424JAN05

PATIENT
  Age: 15 Month
  Sex: Female

DRUGS (3)
  1. IBUPROFEN [Suspect]
     Indication: PYREXIA
     Route: 048
  2. CEFUROXIME [Concomitant]
     Indication: LOBAR PNEUMONIA
     Dosage: UNKNOWN
     Route: 042
  3. ACETAMINOPHEN [Suspect]
     Indication: PYREXIA
     Dosage: 15MG/KG, FREQUENCY UNKNOWN
     Route: 048

REACTIONS (1)
  - HYPOTHERMIA [None]
